FAERS Safety Report 15274597 (Version 1)
Quarter: 2018Q3

REPORT INFORMATION
  Report Type: Other
  Country: US (occurrence: US)
  Receive Date: 20180814
  Receipt Date: 20180814
  Transmission Date: 20181010
  Serious: Yes (Other)
  Sender: FDA-Public Use
  Company Number: US-ORCHID HEALTHCARE-2053682

PATIENT
  Age: 42 Year
  Sex: Male

DRUGS (1)
  1. LEVOFLOXACIN. [Suspect]
     Active Substance: LEVOFLOXACIN
     Route: 065

REACTIONS (2)
  - Telangiectasia [Recovered/Resolved]
  - Chronic pigmented purpura [Recovered/Resolved]
